FAERS Safety Report 6774345-4 (Version None)
Quarter: 2010Q2

REPORT INFORMATION
  Report Type: 
  Country: None (occurrence: None)
  Receive Date: 20100617
  Receipt Date: 20100607
  Transmission Date: 20101027
  Serious: Yes (Hospitalization)
  Sender: FDA-Public Use
  Company Number: DAINJ40431

PATIENT
  Sex: Male

DRUGS (10)
  1. LOPERAMIDE [Suspect]
     Indication: DIARRHOEA
     Route: 048
     Dates: start: 19971104, end: 19971105
  2. MEFENAMIC ACID [Suspect]
     Indication: ANTIPYRESIS
     Route: 048
     Dates: start: 19971104, end: 19971105
  3. BIOFERMIN R [Suspect]
     Indication: DIARRHOEA
     Route: 048
  4. MARZULENE S [Suspect]
     Indication: ABDOMINAL PAIN
     Route: 048
  5. NINJIN-YOEI-TO [Concomitant]
     Dates: start: 19970512
  6. GLIBENCLAMIDE [Concomitant]
     Dates: start: 19970609
  7. LACTOMIN [Concomitant]
     Dates: start: 19971104, end: 19971105
  8. AZULENE [Concomitant]
     Dates: start: 19971104, end: 19971105
  9. ANTIDIARRHEAL [Concomitant]
     Indication: DIARRHOEA
     Dates: start: 19971030
  10. CHINESE MEDICATION [Concomitant]
     Route: 065

REACTIONS (5)
  - CONDITION AGGRAVATED [None]
  - DRUG ERUPTION [None]
  - PYREXIA [None]
  - TREMOR [None]
  - URTICARIA [None]
